FAERS Safety Report 5639063-4 (Version None)
Quarter: 2008Q1

REPORT INFORMATION
  Report Type: 
  Country: None (occurrence: None)
  Receive Date: 20080226
  Receipt Date: 20070216
  Transmission Date: 20080703
  Serious: No
  Sender: FDA-Public Use
  Company Number: US-BAUSCH-2007BL000528

PATIENT
  Age: 44 Year
  Sex: Male

DRUGS (3)
  1. FLUNISOLIDE NASAL SOLUTION USP 0.025% [Suspect]
     Indication: NASAL POLYPS
     Route: 045
     Dates: start: 20070112, end: 20070213
  2. FLUNISOLIDE NASAL SOLUTION USP 0.025% [Suspect]
     Indication: HEADACHE
     Route: 045
     Dates: start: 20070112, end: 20070213
  3. ^UNSPECIFIED PAIN RELIEVER FOR ARTHRITIS^ [Concomitant]
     Indication: ARTHRITIS

REACTIONS (5)
  - EYE PRURITUS [None]
  - EYELID OEDEMA [None]
  - NASAL CONGESTION [None]
  - NASAL DISCOMFORT [None]
  - PHARMACEUTICAL PRODUCT COMPLAINT [None]
